FAERS Safety Report 22594586 (Version 1)
Quarter: 2023Q2

REPORT INFORMATION
  Report Type: Report from Study
  Country: CA (occurrence: CA)
  Receive Date: 20230613
  Receipt Date: 20230613
  Transmission Date: 20230721
  Serious: Yes (Hospitalization)
  Sender: FDA-Public Use
  Company Number: CA-MYLANLABS-2023M1061460

PATIENT
  Age: 80 Year
  Sex: Male
  Weight: 93.1 kg

DRUGS (1)
  1. OGIVRI [Suspect]
     Active Substance: TRASTUZUMAB-DKST
     Indication: Salivary gland cancer
     Dosage: 798 MILLIGRAM, Q3W
     Route: 042
     Dates: start: 20230526

REACTIONS (3)
  - Myocardial infarction [Unknown]
  - Off label use [Unknown]
  - Inappropriate schedule of product administration [Unknown]

NARRATIVE: CASE EVENT DATE: 20230526
